FAERS Safety Report 24669832 (Version 1)
Quarter: 2024Q4

REPORT INFORMATION
  Report Type: Spontaneous
  Country: HU (occurrence: HU)
  Receive Date: 20241127
  Receipt Date: 20241127
  Transmission Date: 20250115
  Serious: Yes (Other)
  Sender: PFIZER
  Company Number: HU-PFIZER INC-PV202400146224

PATIENT
  Age: 65 Year
  Sex: Female
  Weight: 95 kg

DRUGS (10)
  1. TUKYSA [Suspect]
     Active Substance: TUCATINIB
     Indication: Breast cancer metastatic
     Dosage: FIRST CYCLE 2X300 MG
     Route: 048
     Dates: start: 20240812, end: 20240904
  2. TUKYSA [Suspect]
     Active Substance: TUCATINIB
     Dosage: SECOND CYCLE (REDUCED DOSE) (2X300 MG)
     Route: 048
     Dates: start: 20240904, end: 20240925
  3. TUKYSA [Suspect]
     Active Substance: TUCATINIB
     Dosage: UNK
     Route: 048
     Dates: start: 20241016, end: 20241024
  4. TRASTUZUMAB [Suspect]
     Active Substance: TRASTUZUMAB
     Indication: Breast cancer metastatic
     Dosage: FIRST CYCLE (744 MG)
     Route: 042
     Dates: start: 20240812, end: 20240812
  5. TRASTUZUMAB [Suspect]
     Active Substance: TRASTUZUMAB
     Dosage: SECOND CYCLE (558 MG)
     Route: 042
     Dates: start: 20240904, end: 20240904
  6. CAPECITABINE [Suspect]
     Active Substance: CAPECITABINE
     Indication: Breast cancer metastatic
     Dosage: FIRST CYCLE (2X2000 MG)
     Route: 048
     Dates: start: 20240812, end: 20240825
  7. CAPECITABINE [Suspect]
     Active Substance: CAPECITABINE
     Dosage: SECOND CYCLE (2X2000 MG)
     Route: 048
     Dates: start: 20240904, end: 20240917
  8. AMLODIPINE [Concomitant]
     Active Substance: AMLODIPINE BESYLATE
     Indication: Hypertension
  9. FOSICARD [Concomitant]
     Indication: Hypertension
  10. CITROCALCIUM [Concomitant]
     Indication: Osteoporosis

REACTIONS (3)
  - Aspartate aminotransferase increased [Recovering/Resolving]
  - Alanine aminotransferase increased [Recovering/Resolving]
  - Hepatic pain [Recovered/Resolved]

NARRATIVE: CASE EVENT DATE: 20240924
